FAERS Safety Report 5341424-8 (Version None)
Quarter: 2007Q2

REPORT INFORMATION
  Report Type: 
  Country: None (occurrence: None)
  Receive Date: 20070530
  Receipt Date: 20070517
  Transmission Date: 20071010
  Serious: Yes (Hospitalization)
  Sender: FDA-Public Use
  Company Number: GXKR2007GB04464

PATIENT
  Age: 84 Year
  Sex: Male

DRUGS (7)
  1. ASPIRIN [Suspect]
     Indication: ATRIAL FIBRILLATION
     Dosage: 75 MG, QD, ORAL
     Route: 048
     Dates: start: 20040611, end: 20070502
  2. HYDROXYCARBAMIDE (HYDROXYCARBAMIDE) [Suspect]
     Indication: POLYCYTHAEMIA VERA
     Dosage: 1 G, QD, ORAL
     Route: 048
     Dates: start: 20050101, end: 20070502
  3. BISOPROLOL FUMARATE [Concomitant]
  4. FELODIPINE [Concomitant]
  5. FUROSEMIDE [Concomitant]
  6. LANSOPRAZOLE [Concomitant]
  7. LISINOPRIL [Concomitant]

REACTIONS (4)
  - DIZZINESS [None]
  - PALLOR [None]
  - PANCYTOPENIA [None]
  - RECTAL HAEMORRHAGE [None]
